FAERS Safety Report 14866119 (Version 1)
Quarter: 2018Q2

REPORT INFORMATION
  Report Type: Spontaneous
  Country: US (occurrence: US)
  Receive Date: 20180508
  Receipt Date: 20180508
  Transmission Date: 20180711
  Serious: No
  Sender: FDA-Public Use
  Company Number: US-ROCHE-1985919

PATIENT
  Age: 74 Year
  Sex: Male

DRUGS (1)
  1. ESBRIET [Suspect]
     Active Substance: PIRFENIDONE
     Indication: IDIOPATHIC PULMONARY FIBROSIS
     Route: 048
     Dates: start: 20170621

REACTIONS (6)
  - Rash [Unknown]
  - Pruritus [Unknown]
  - Vomiting [Unknown]
  - Decreased appetite [Unknown]
  - Rash erythematous [Unknown]
  - Nausea [Unknown]

NARRATIVE: CASE EVENT DATE: 20170822
